FAERS Safety Report 17536238 (Version 2)
Quarter: 2020Q1

REPORT INFORMATION
  Report Type: Spontaneous
  Country: IT (occurrence: IT)
  Receive Date: 20200313
  Receipt Date: 20200318
  Transmission Date: 20200409
  Serious: Yes (Hospitalization)
  Sender: FDA-Public Use
  Company Number: IT-IBIGEN-2020.08472

PATIENT
  Age: 91 Year
  Sex: Female

DRUGS (8)
  1. CLOPIDOGREL AUROBINDO 75 MG COMPRESSE RIVESTITE CON FILM [Concomitant]
     Indication: PROPHYLAXIS
     Route: 048
  2. CARDICOR [Concomitant]
     Active Substance: BISOPROLOL
     Indication: CARDIAC FAILURE CHRONIC
     Route: 048
  3. TARGOSID [Suspect]
     Active Substance: TEICOPLANIN
     Indication: PNEUMONITIS
     Route: 042
     Dates: start: 20200222, end: 20200227
  4. FUROSEMIDE. [Concomitant]
     Active Substance: FUROSEMIDE
     Indication: HYPERTENSION
     Route: 051
  5. ELIQUIS [Concomitant]
     Active Substance: APIXABAN
     Indication: PROPHYLAXIS
     Route: 048
  6. PIPERACILLINA/TAZOBACTAM [Suspect]
     Active Substance: PIPERACILLIN SODIUM\TAZOBACTAM SODIUM
     Indication: PNEUMONITIS
     Route: 042
     Dates: start: 20200217, end: 20200227
  7. ACIDO ACETILSALICILICO TEVA ITALIA 100 MG COMPRESSE GASTRORESISTENTI [Concomitant]
     Indication: PROPHYLAXIS
     Route: 048
  8. PANTOPRAZOLE [Concomitant]
     Active Substance: PANTOPRAZOLE
     Indication: PROPHYLAXIS
     Route: 048

REACTIONS (2)
  - Pneumonitis [Recovering/Resolving]
  - Drug ineffective [Recovering/Resolving]

NARRATIVE: CASE EVENT DATE: 20200226
